FAERS Safety Report 6028951-5 (Version None)
Quarter: 2009Q1

REPORT INFORMATION
  Report Type: 
  Country: None (occurrence: None)
  Receive Date: 20090106
  Receipt Date: 20081229
  Transmission Date: 20090719
  Serious: Yes (Other)
  Sender: FDA-Public Use
  Company Number: PHHY2008GB33434

PATIENT
  Sex: Female

DRUGS (2)
  1. CLOZARIL [Suspect]
     Indication: SCHIZOPHRENIA
     Dosage: UNK
     Route: 048
     Dates: start: 19980510, end: 20081226
  2. OLANZAPINE [Concomitant]
     Dosage: UNK

REACTIONS (2)
  - DYSKINESIA [None]
  - HUNTINGTON'S CHOREA [None]
